FAERS Safety Report 19315041 (Version 2)
Quarter: 2021Q2

REPORT INFORMATION
  Report Type: Report from Study
  Country: IT (occurrence: IT)
  Receive Date: 20210527
  Receipt Date: 20210601
  Transmission Date: 20210717
  Serious: Yes (Other)
  Sender: FDA-Public Use
  Company Number: IT-GLAXOSMITHKLINE-IT2021112728

PATIENT
  Age: 1 Year
  Sex: Male

DRUGS (1)
  1. MENINGOCOCCAL B RECOM VACCINE + ALOH + OMV [Suspect]
     Active Substance: MENINGOCOCCAL GROUP B VACCINE
     Indication: PROPHYLAXIS
     Route: 065
     Dates: start: 20210426

REACTIONS (2)
  - Hyperpyrexia [Recovered/Resolved]
  - Restlessness [Recovered/Resolved]

NARRATIVE: CASE EVENT DATE: 20210426
